FAERS Safety Report 7090394-3 (Version None)
Quarter: 2010Q4

REPORT INFORMATION
  Report Type: 
  Country: None (occurrence: None)
  Receive Date: 20101109
  Receipt Date: 20101105
  Transmission Date: 20110411
  Serious: Yes (Death)
  Sender: FDA-Public Use
  Company Number: PHHY2010US74584

PATIENT
  Sex: Female

DRUGS (1)
  1. EXJADE [Suspect]
     Indication: ANAEMIA HAEMOLYTIC AUTOIMMUNE
     Dosage: 1000 MG/DAY
     Route: 048
     Dates: start: 20100511, end: 20100907

REACTIONS (1)
  - DEATH [None]
